FAERS Safety Report 18822398 (Version 1)
Quarter: 2021Q1

REPORT INFORMATION
  Report Type: Spontaneous
  Country: US (occurrence: US)
  Receive Date: 20210202
  Receipt Date: 20210202
  Transmission Date: 20210419
  Serious: No
  Sender: FDA-Public Use
  Company Number: US-BAYER-2021-040657

PATIENT

DRUGS (8)
  1. COVID?19 VACCINE NOS. [Suspect]
     Active Substance: COVID-19 VACCINE NOS
     Dosage: UNK
     Dates: start: 202101
  2. CLARITIN [Suspect]
     Active Substance: LORATADINE
     Indication: ERYTHEMA
  3. CLARITIN [Suspect]
     Active Substance: LORATADINE
     Indication: URTICARIA
  4. CLARITIN [Suspect]
     Active Substance: LORATADINE
     Indication: PRURITUS
  5. CLARITIN [Suspect]
     Active Substance: LORATADINE
     Indication: RASH
  6. CLARITIN [Suspect]
     Active Substance: LORATADINE
     Indication: HYPERSENSITIVITY
     Dosage: UNK
     Dates: start: 202101
  7. CLARITIN [Suspect]
     Active Substance: LORATADINE
     Indication: EYE SWELLING
  8. CLARITIN [Suspect]
     Active Substance: LORATADINE
     Indication: THROAT IRRITATION

REACTIONS (2)
  - Drug ineffective [Unknown]
  - Drug ineffective for unapproved indication [Unknown]

NARRATIVE: CASE EVENT DATE: 202101
